FAERS Safety Report 4417646-7 (Version None)
Quarter: 2004Q2

REPORT INFORMATION
  Report Type: 
  Country: None (occurrence: None)
  Receive Date: 20040625
  Receipt Date: 20040426
  Transmission Date: 20050107
  Serious: Yes (Hospitalization)
  Sender: FDA-Public Use
  Company Number: 206134

PATIENT
  Sex: Female

DRUGS (2)
  1. AVASTIN [Suspect]
     Indication: COLORECTAL CANCER
     Dosage: 260 MG, INTRAVENOUS
     Route: 042
     Dates: start: 20040315
  2. CATAPRES-TTS-1 [Concomitant]

REACTIONS (1)
  - HYPERTENSION [None]
